FAERS Safety Report 11839682 (Version 1)
Quarter: 2015Q4

REPORT INFORMATION
  Report Type: Spontaneous
  Country: DE (occurrence: DE)
  Receive Date: 20151216
  Receipt Date: 20151216
  Transmission Date: 20160305
  Serious: Yes (Other)
  Sender: FDA-Public Use
  Company Number: DE-ROCHE-1676376

PATIENT
  Age: 58 Year
  Sex: Female

DRUGS (10)
  1. AVASTIN [Suspect]
     Active Substance: BEVACIZUMAB
     Dosage: MAINTENANCE MONO THERAPY
     Route: 065
     Dates: start: 20130220
  2. AVASTIN [Suspect]
     Active Substance: BEVACIZUMAB
     Dosage: MONO THERAPY
     Route: 065
  3. CAPECITABINE. [Concomitant]
     Active Substance: CAPECITABINE
     Indication: BREAST CANCER
     Route: 065
     Dates: start: 201304
  4. MITOMYCIN C [Concomitant]
     Active Substance: MITOMYCIN
     Indication: BREAST CANCER
     Route: 065
     Dates: start: 20151104
  5. PACLITAXEL. [Concomitant]
     Active Substance: PACLITAXEL
     Indication: BREAST CANCER
     Route: 065
     Dates: start: 20121011, end: 201302
  6. VINORELBINE [Concomitant]
     Active Substance: VINORELBINE\VINORELBINE TARTRATE
     Indication: BREAST CANCER
     Route: 065
     Dates: start: 20151104
  7. AVASTIN [Suspect]
     Active Substance: BEVACIZUMAB
     Indication: BREAST CANCER
     Dosage: IN COMBINATION WITH PACLITAXEL
     Route: 065
     Dates: start: 20121011
  8. AVASTIN [Suspect]
     Active Substance: BEVACIZUMAB
     Dosage: IN COMBINATION WITH CAPECITABIN
     Route: 065
     Dates: start: 201304
  9. AVASTIN [Suspect]
     Active Substance: BEVACIZUMAB
     Dosage: IN COMBINATION WITH MITOMYCIN AND VINORELBIN
     Route: 065
     Dates: start: 20151104
  10. FASLODEX [Concomitant]
     Active Substance: FULVESTRANT
     Indication: BREAST CANCER
     Route: 065
     Dates: start: 20110831

REACTIONS (1)
  - Breast ulceration [Recovered/Resolved]

NARRATIVE: CASE EVENT DATE: 20150915
